FAERS Safety Report 11831372 (Version 1)
Quarter: 2015Q4

REPORT INFORMATION
  Report Type: Spontaneous
  Country: None (occurrence: None)
  Receive Date: 20151211
  Receipt Date: 20151211
  Transmission Date: 20160305
  Serious: Yes (Hospitalization)
  Sender: FDA-Public Use
  Company Number: None

PATIENT
  Age: 43 Year
  Sex: Female
  Weight: 55.8 kg

DRUGS (3)
  1. CARBOPLATIN. [Suspect]
     Active Substance: CARBOPLATIN
     Dates: end: 20151007
  2. TAXOL [Suspect]
     Active Substance: PACLITAXEL
     Dates: end: 20151007
  3. CISPLATIN. [Suspect]
     Active Substance: CISPLATIN
     Dates: end: 20150901

REACTIONS (6)
  - Ileus [None]
  - C-reactive protein increased [None]
  - Abdominal pain [None]
  - Vomiting [None]
  - Nausea [None]
  - Pyrexia [None]

NARRATIVE: CASE EVENT DATE: 20151009
